FAERS Safety Report 9861717 (Version 1)
Quarter: 2014Q1

REPORT INFORMATION
  Report Type: Spontaneous
  Country: US (occurrence: None)
  Receive Date: 20140131
  Receipt Date: 20140131
  Transmission Date: 20141002
  Serious: Yes (Hospitalization)
  Sender: FDA-Public Use
  Company Number: None

PATIENT
  Age: 27 Year
  Sex: Female
  Weight: 71 kg

DRUGS (2)
  1. DAPTOMYCIN [Suspect]
     Indication: DECUBITUS ULCER
     Route: 042
     Dates: start: 20130930, end: 20131022
  2. IMIPENEM [Concomitant]

REACTIONS (2)
  - Osteomyelitis [None]
  - Pneumonia [None]
